FAERS Safety Report 7799475-X (Version None)
Quarter: 2011Q4

REPORT INFORMATION
  Report Type: 
  Country: None (occurrence: None)
  Receive Date: 20111006
  Receipt Date: 20110927
  Transmission Date: 20120403
  Serious: Yes (Other)
  Sender: FDA-Public Use
  Company Number: PHHY2011HU82694

PATIENT
  Age: 63 Year
  Sex: Male

DRUGS (1)
  1. DICLOFENAC [Suspect]
     Indication: ARTHROPATHY
     Dosage: UNK UKN, UNK
     Route: 048

REACTIONS (7)
  - ARTHRALGIA [None]
  - SKIN DISORDER [None]
  - PSORIASIS [None]
  - CATARACT [None]
  - RENAL FAILURE ACUTE [None]
  - ARTHROPATHY [None]
  - ERYTHEMA MULTIFORME [None]
